FAERS Safety Report 13915174 (Version 1)
Quarter: 2017Q3

REPORT INFORMATION
  Report Type: Spontaneous
  Country: US (occurrence: US)
  Receive Date: 20170828
  Receipt Date: 20170828
  Transmission Date: 20171127
  Serious: Yes (Other)
  Sender: FDA-Public Use
  Company Number: None

PATIENT
  Age: 69 Year
  Sex: Female
  Weight: 48.6 kg

DRUGS (10)
  1. LOSARTAN. [Suspect]
     Active Substance: LOSARTAN
     Indication: ALOPECIA
     Dosage: ?          QUANTITY:90 TABLET(S);?
     Route: 048
  2. BIOTIN [Concomitant]
     Active Substance: BIOTIN
  3. MULTI VITAMIN [Concomitant]
     Active Substance: VITAMINS
  4. LISINOPRIL. [Suspect]
     Active Substance: LISINOPRIL
     Indication: HYPERTENSION
     Dosage: ?          QUANTITY:90 TABLET(S);?
     Route: 048
  5. VITAMIN C [Concomitant]
     Active Substance: ASCORBIC ACID
  6. CALCIUM [Concomitant]
     Active Substance: CALCIUM
  7. CULTURELLE [Concomitant]
     Active Substance: LACTOBACILLUS RHAMNOSUS
  8. LISINOPRIL. [Suspect]
     Active Substance: LISINOPRIL
     Indication: ALOPECIA
     Dosage: ?          QUANTITY:90 TABLET(S);?
     Route: 048
  9. DOXYCYCLINE. [Concomitant]
     Active Substance: DOXYCYCLINE
  10. LOSARTAN. [Suspect]
     Active Substance: LOSARTAN
     Indication: HYPERTENSION
     Dosage: ?          QUANTITY:90 TABLET(S);?
     Route: 048

REACTIONS (1)
  - Alopecia [None]
